FAERS Safety Report 7020243-0 (Version None)
Quarter: 2010Q3

REPORT INFORMATION
  Report Type: 
  Country: None (occurrence: None)
  Receive Date: 20100929
  Receipt Date: 20100921
  Transmission Date: 20110219
  Serious: Yes (Death, Hospitalization, Disabling)
  Sender: FDA-Public Use
  Company Number: PHHY2010JP18341

PATIENT
  Sex: Male
  Weight: 49 kg

DRUGS (10)
  1. ICL670A ICL+DISTAB [Suspect]
     Indication: IRON OVERLOAD
     Dosage: 500 MG DAILY
     Route: 048
     Dates: start: 20081111, end: 20081119
  2. ICL670A ICL+DISTAB [Suspect]
     Dosage: 1000 MG DAILY
     Route: 048
     Dates: start: 20081120, end: 20090131
  3. ICL670A ICL+DISTAB [Suspect]
     Dosage: 500 MG DAILY
     Route: 048
     Dates: start: 20090226, end: 20090708
  4. DESFERAL [Concomitant]
     Dosage: 500 MG, UNK
     Route: 030
     Dates: start: 20070129, end: 20071209
  5. PURSENNID [Concomitant]
     Dosage: 12 MG, UNK
     Route: 048
     Dates: start: 20070328
  6. DIGOSIN [Concomitant]
     Indication: MYELODYSPLASTIC SYNDROME
     Dosage: 0.125 MG, UNK
     Route: 048
     Dates: start: 20070628
  7. JUUZENTAIHOTOU [Concomitant]
     Indication: MYELODYSPLASTIC SYNDROME
     Dosage: 7.5 G, UNK
     Route: 048
     Dates: start: 20060116
  8. LUPRAC [Concomitant]
     Dosage: 4 MG, UNK
     Route: 048
     Dates: start: 20070417
  9. RED BLOOD CELLS, CONCENTRATED [Concomitant]
     Dosage: 2 UNITS EVERY WEEK
     Dates: start: 20081113, end: 20090910
  10. GASPORT [Concomitant]
     Dosage: 20 MG
     Route: 048
     Dates: start: 20060615

REACTIONS (14)
  - ANAEMIA [None]
  - BLOOD UREA INCREASED [None]
  - BONE MARROW FAILURE [None]
  - CONDITION AGGRAVATED [None]
  - DECREASED APPETITE [None]
  - DISEASE PROGRESSION [None]
  - HEPATIC FUNCTION ABNORMAL [None]
  - LEUKOPENIA [None]
  - MALAISE [None]
  - MYELODYSPLASTIC SYNDROME [None]
  - NAUSEA [None]
  - PLATELET COUNT DECREASED [None]
  - SERUM FERRITIN INCREASED [None]
  - WHITE BLOOD CELL COUNT DECREASED [None]
